FAERS Safety Report 6406700-6 (Version None)
Quarter: 2009Q4

REPORT INFORMATION
  Report Type: 
  Country: None (occurrence: None)
  Receive Date: 20091020
  Receipt Date: 20091013
  Transmission Date: 20100525
  Serious: Yes (Other)
  Sender: FDA-Public Use
  Company Number: US-RANBAXY-2009US-28224

PATIENT

DRUGS (1)
  1. ISOTRETINOIN [Suspect]
     Indication: ACNE
     Dosage: 40 MG, BID
     Route: 048
     Dates: start: 20070401, end: 20090617

REACTIONS (19)
  - BACK PAIN [None]
  - COAGULOPATHY [None]
  - DIARRHOEA [None]
  - DYSURIA [None]
  - FLUSHING [None]
  - GASTROOESOPHAGEAL REFLUX DISEASE [None]
  - HAEMATOCHEZIA [None]
  - HAEMATOMA [None]
  - HEADACHE [None]
  - HEMIPLEGIA [None]
  - HYPERHIDROSIS [None]
  - IMMUNODEFICIENCY [None]
  - IMPAIRED WORK ABILITY [None]
  - IRRITABLE BOWEL SYNDROME [None]
  - MUSCLE SPASMS [None]
  - MYALGIA [None]
  - NECK PAIN [None]
  - PROCEDURAL COMPLICATION [None]
  - WEIGHT DECREASED [None]
